FAERS Safety Report 6288781-6 (Version None)
Quarter: 2009Q3

REPORT INFORMATION
  Report Type: 
  Country: None (occurrence: None)
  Receive Date: 20090727
  Receipt Date: 20090714
  Transmission Date: 20100115
  Serious: Yes (Other)
  Sender: FDA-Public Use
  Company Number: 2009S1012917

PATIENT
  Age: 14 Year
  Sex: Female

DRUGS (4)
  1. AZATHIOPRINE [Suspect]
     Indication: HEART TRANSPLANT
  2. CYCLOSPORINE [Suspect]
     Indication: DRUG USE FOR UNKNOWN INDICATION
  3. PREDNISOLONE [Suspect]
     Indication: HEART TRANSPLANT
  4. TACROLIMUS [Suspect]
     Indication: HEART TRANSPLANT

REACTIONS (5)
  - ACUTE LYMPHOCYTIC LEUKAEMIA [None]
  - BACK PAIN [None]
  - BURKITT'S LYMPHOMA STAGE III [None]
  - EPSTEIN-BARR VIRUS ASSOCIATED LYMPHOPROLIFERATIVE DISORDER [None]
  - EPSTEIN-BARR VIRUS INFECTION [None]
